FAERS Safety Report 8590949-0 (Version None)
Quarter: 2012Q3

REPORT INFORMATION
  Report Type: 
  Country: None (occurrence: None)
  Receive Date: 20120813
  Receipt Date: 20120801
  Transmission Date: 20120928
  Serious: Yes (Death)
  Sender: FDA-Public Use
  Company Number: JP-BAXTER-2012BAX012528

PATIENT
  Sex: Male

DRUGS (2)
  1. DIANEAL 137 W/ DEXTROSE 2.5% IN PLASTIC CONTAINER [Suspect]
     Indication: RENAL FAILURE CHRONIC
     Route: 033
     Dates: end: 20120722
  2. EXTRANEAL [Suspect]
     Indication: RENAL FAILURE CHRONIC
     Route: 033
     Dates: end: 20120722

REACTIONS (1)
  - CARDIAC FAILURE [None]
